FAERS Safety Report 11079675 (Version 2)
Quarter: 2016Q1

REPORT INFORMATION
  Report Type: Report from Study
  Country: GB (occurrence: GB)
  Receive Date: 20150430
  Receipt Date: 20160302
  Transmission Date: 20160525
  Serious: Yes (Hospitalization, Other)
  Sender: FDA-Public Use
  Company Number: GB-ABBVIE-15K-167-1381555-00

PATIENT
  Age: 49 Year
  Sex: Male
  Weight: 96 kg

DRUGS (2)
  1. PARACETAMOL [Concomitant]
     Active Substance: ACETAMINOPHEN
     Indication: PRODUCT USED FOR UNKNOWN INDICATION
     Dates: start: 20150120
  2. HUMIRA [Suspect]
     Active Substance: ADALIMUMAB
     Indication: PSORIASIS
     Route: 058
     Dates: start: 20091110, end: 20150606

REACTIONS (6)
  - Neoplasm progression [Unknown]
  - Brain neoplasm [Unknown]
  - Cerebral cyst [Unknown]
  - Personality change [Unknown]
  - Glioblastoma multiforme [Unknown]
  - Brain oedema [Unknown]

NARRATIVE: CASE EVENT DATE: 20150120
